FAERS Safety Report 15061992 (Version 1)
Quarter: 2018Q2

REPORT INFORMATION
  Report Type: Spontaneous
  Country: US (occurrence: US)
  Receive Date: 20180625
  Receipt Date: 20180625
  Transmission Date: 20180711
  Serious: No
  Sender: FDA-Public Use
  Company Number: US-009507513-1806USA008803

PATIENT
  Sex: Female

DRUGS (1)
  1. NEXPLANON [Suspect]
     Active Substance: ETONOGESTREL
     Indication: CONTRACEPTION
     Dosage: 1 DF, IN THE LEFT ARM
     Route: 059
     Dates: start: 20180618

REACTIONS (5)
  - Mood altered [Unknown]
  - Anger [Unknown]
  - Chest discomfort [Unknown]
  - Movement disorder [Unknown]
  - Irritability [Unknown]

NARRATIVE: CASE EVENT DATE: 20180619
